APPROVED DRUG PRODUCT: NEOTHYLLINE
Active Ingredient: DYPHYLLINE
Strength: 250MG/ML
Dosage Form/Route: INJECTABLE;INJECTION
Application: N009088 | Product #001
Applicant: TEVA PHARMACEUTICALS USA INC
Approved: Approved Prior to Jan 1, 1982 | RLD: No | RS: No | Type: DISCN